FAERS Safety Report 4906987-2 (Version None)
Quarter: 2006Q1

REPORT INFORMATION
  Report Type: 
  Country: None (occurrence: None)
  Receive Date: 20060207
  Receipt Date: 20060127
  Transmission Date: 20060701
  Serious: Yes (Death)
  Sender: FDA-Public Use
  Company Number: L05-USA-03935-62

PATIENT
  Age: 68 Year
  Sex: Male

DRUGS (1)
  1. THEOPHYLLINE [Suspect]

REACTIONS (7)
  - ACCIDENTAL OVERDOSE [None]
  - HAEMODIALYSIS [None]
  - HYPOTENSION [None]
  - MEDICATION ERROR [None]
  - RESPIRATORY ARREST [None]
  - RESPIRATORY DISTRESS [None]
  - TACHYCARDIA [None]
